FAERS Safety Report 7499806-4 (Version None)
Quarter: 2011Q2

REPORT INFORMATION
  Report Type: 
  Country: None (occurrence: None)
  Receive Date: 20110524
  Receipt Date: 20110518
  Transmission Date: 20111010
  Serious: Yes (Death)
  Sender: FDA-Public Use
  Company Number: US-ABBOTT-11P-163-0726709-00

PATIENT

DRUGS (1)
  1. LUPRON DEPOT [Suspect]
     Indication: PROSTATE CANCER
     Dates: start: 20080101

REACTIONS (3)
  - ARRHYTHMIA [None]
  - PNEUMONIA [None]
  - CARDIO-RESPIRATORY ARREST [None]
